FAERS Safety Report 9200278 (Version 2)
Quarter: 2013Q4

REPORT INFORMATION
  Report Type: Report from Study
  Country: CA (occurrence: CA)
  Receive Date: 20130329
  Receipt Date: 20131226
  Transmission Date: 20140711
  Serious: Yes (Hospitalization)
  Sender: FDA-Public Use
  Company Number: CA-BRISTOL-MYERS SQUIBB COMPANY-18703314

PATIENT
  Age: 64 Year
  Sex: Female

DRUGS (7)
  1. ORENCIA [Suspect]
     Indication: RHEUMATOID ARTHRITIS
     Dosage: 1 DF: 750 UNITS NOS?LAST INF:17/1/13?DRUG INTRUPTED ON 21/2/13.
     Route: 042
     Dates: start: 20070614
  2. PREDNISONE [Concomitant]
  3. PREVACID [Concomitant]
  4. OXYBUTYNIN [Concomitant]
  5. CITALOPRAM [Concomitant]
  6. NORTRIPTYLINE [Concomitant]
  7. TYLENOL #3 [Concomitant]

REACTIONS (3)
  - Myelitis transverse [Not Recovered/Not Resolved]
  - Pyrexia [Not Recovered/Not Resolved]
  - Weight decreased [Not Recovered/Not Resolved]
